FAERS Safety Report 8353867-9 (Version None)
Quarter: 2012Q2

REPORT INFORMATION
  Report Type: 
  Country: None (occurrence: None)
  Receive Date: 20120511
  Receipt Date: 20120124
  Transmission Date: 20120825
  Serious: No
  Sender: FDA-Public Use
  Company Number: US-GLAXOSMITHKLINE-A0962948A

PATIENT
  Age: 41 Year
  Sex: Female

DRUGS (7)
  1. TOPAMAX [Concomitant]
  2. DECADRON [Concomitant]
  3. PREVACID [Concomitant]
  4. AROMASIN [Concomitant]
  5. AMBIEN [Concomitant]
  6. TYKERB [Suspect]
     Indication: BREAST CANCER
     Dosage: 5TAB PER DAY
     Route: 048
     Dates: start: 20120117, end: 20120123
  7. ATIVAN [Concomitant]

REACTIONS (10)
  - DECREASED APPETITE [None]
  - DYSPNOEA [None]
  - MALAISE [None]
  - HEART RATE INCREASED [None]
  - PERFORMANCE STATUS DECREASED [None]
  - NAUSEA [None]
  - DIARRHOEA [None]
  - VOMITING [None]
  - PALPITATIONS [None]
  - REGURGITATION [None]
